FAERS Safety Report 11137433 (Version 1)
Quarter: 2015Q2

REPORT INFORMATION
  Report Type: Spontaneous
  Country: US (occurrence: US)
  Receive Date: 20150526
  Receipt Date: 20150526
  Transmission Date: 20150821
  Serious: No
  Sender: FDA-Public Use
  Company Number: US-PFIZER INC-2015173318

PATIENT
  Age: 62 Year
  Sex: Male
  Weight: 82 kg

DRUGS (5)
  1. VIAGRA [Suspect]
     Active Substance: SILDENAFIL CITRATE
  2. TRAMADOL [Concomitant]
     Active Substance: TRAMADOL
     Indication: SURGERY
  3. ONE-A-DAY [Concomitant]
  4. CIALIS [Suspect]
     Active Substance: TADALAFIL
  5. TRAMADOL [Concomitant]
     Active Substance: TRAMADOL
     Indication: PAIN
     Dosage: 50 MG, 2 TABLETS EVERY 6 HOURS
     Route: 048

REACTIONS (1)
  - Drug ineffective [Unknown]
